FAERS Safety Report 4743624-4 (Version None)
Quarter: 2005Q3

REPORT INFORMATION
  Report Type: 
  Country: None (occurrence: None)
  Receive Date: 20050810
  Receipt Date: 20050810
  Transmission Date: 20060218
  Serious: Yes (Hospitalization)
  Sender: FDA-Public Use
  Company Number: None

PATIENT
  Age: 69 Year
  Sex: Female
  Weight: 85.7 kg

DRUGS (1)
  1. LEVOFLOXACIN [Suspect]
     Indication: ABDOMINAL INFECTION
     Dosage: 500MG  IV  Q24H
     Route: 042
     Dates: start: 20050529, end: 20050601

REACTIONS (1)
  - PLATELET COUNT DECREASED [None]
